FAERS Safety Report 17514322 (Version 1)
Quarter: 2020Q1

REPORT INFORMATION
  Report Type: Spontaneous
  Country: US (occurrence: US)
  Receive Date: 20200309
  Receipt Date: 20200309
  Transmission Date: 20200409
  Serious: Yes (Hospitalization, Other)
  Sender: FDA-Public Use
  Company Number: US-LEADING PHARMA LLC-US-2020LEALIT00029

PATIENT
  Age: 72 Year
  Sex: Male

DRUGS (9)
  1. ASPIRINE [Suspect]
     Active Substance: ASPIRIN
  2. LEVOTHYROXINE. [Suspect]
     Active Substance: LEVOTHYROXINE
  3. BACLOFEN. [Suspect]
     Active Substance: BACLOFEN
  4. AMLODIPINE [Suspect]
     Active Substance: AMLODIPINE BESYLATE
  5. CLOPIDOGREL [Suspect]
     Active Substance: CLOPIDOGREL BISULFATE
  6. ATORVASTATIN [Suspect]
     Active Substance: ATORVASTATIN
  7. FUROSEMIDE TABLETS USP [Suspect]
     Active Substance: FUROSEMIDE
  8. HYDRALAZINE [Suspect]
     Active Substance: HYDRALAZINE HYDROCHLORIDE
  9. HYDROCHLOROTHIAZIDE TABLETS USP [Suspect]
     Active Substance: HYDROCHLOROTHIAZIDE

REACTIONS (5)
  - Abdominal pain upper [Recovered/Resolved]
  - Gastrointestinal tract mucosal pigmentation [Recovered/Resolved]
  - Nausea [Recovered/Resolved]
  - Gastrointestinal melanosis [Recovered/Resolved]
  - Haematemesis [Recovered/Resolved]
